FAERS Safety Report 6549772-0 (Version None)
Quarter: 2010Q1

REPORT INFORMATION
  Report Type: 
  Country: None (occurrence: None)
  Receive Date: 20100125
  Receipt Date: 20100119
  Transmission Date: 20100710
  Serious: Yes (Other)
  Sender: FDA-Public Use
  Company Number: US-WYE-H13095310

PATIENT
  Age: 45 Year
  Sex: Female
  Weight: 65.83 kg

DRUGS (2)
  1. ADVIL [Suspect]
     Indication: MUSCLE SPASMS
     Dosage: 2 CAPSULES X 1
     Route: 048
     Dates: start: 20100112, end: 20100112
  2. ADVIL [Suspect]
     Indication: ANALGESIC THERAPY

REACTIONS (2)
  - DYSPNOEA [None]
  - PERIORBITAL OEDEMA [None]
